FAERS Safety Report 10507669 (Version 1)
Quarter: 2014Q4

REPORT INFORMATION
  Report Type: Spontaneous
  Country: FR (occurrence: FR)
  Receive Date: 20141009
  Receipt Date: 20141009
  Transmission Date: 20150528
  Serious: Yes (Hospitalization)
  Sender: FDA-Public Use
  Company Number: FR-PFIZER INC-2014275357

PATIENT
  Age: 93 Year
  Sex: Male

DRUGS (18)
  1. DIFFU K [Interacting]
     Active Substance: POTASSIUM CHLORIDE
     Dosage: 600 MG, 2X/DAY
     Route: 048
     Dates: start: 201408, end: 20140824
  2. PLAVIX [Concomitant]
     Active Substance: CLOPIDOGREL BISULFATE
  3. TAHOR [Concomitant]
     Active Substance: ATORVASTATIN CALCIUM
  4. INEXIUM /01479302/ [Concomitant]
     Active Substance: ESOMEPRAZOLE MAGNESIUM
  5. ALFUZOSIN [Concomitant]
     Active Substance: ALFUZOSIN
     Dosage: UNK
     Dates: start: 201408
  6. KARDEGIC [Concomitant]
     Active Substance: ASPIRIN LYSINE
  7. STAGID [Concomitant]
     Active Substance: METFORMIN PAMOATE
     Dosage: UNK
     Dates: end: 201408
  8. ZESTRIL [Interacting]
     Active Substance: LISINOPRIL
     Dosage: 10 MG, 2X/DAY
     Route: 048
     Dates: end: 20140824
  9. REPAGLINIDE. [Concomitant]
     Active Substance: REPAGLINIDE
  10. LASILIX [Concomitant]
     Active Substance: FUROSEMIDE
     Dosage: 60 MG, 1X/DAY
     Route: 048
     Dates: start: 201408, end: 20140824
  11. LANTUS [Concomitant]
     Active Substance: INSULIN GLARGINE
  12. BURINEX [Concomitant]
     Active Substance: BUMETANIDE
     Dosage: UNK
     Dates: end: 201408
  13. NATISPRAY [Concomitant]
     Active Substance: NITROGLYCERIN
  14. INSPRA [Suspect]
     Active Substance: EPLERENONE
     Dosage: 25 MG, 1X/DAY
     Route: 048
     Dates: start: 201408, end: 20140824
  15. NOVORAPID [Concomitant]
     Active Substance: INSULIN ASPART
  16. PREGABALIN. [Concomitant]
     Active Substance: PREGABALIN
  17. TEMERIT [Concomitant]
     Active Substance: NEBIVOLOL
  18. ALLOPURINOL. [Concomitant]
     Active Substance: ALLOPURINOL

REACTIONS (2)
  - Hyperkalaemia [Recovered/Resolved]
  - Drug interaction [Recovered/Resolved]

NARRATIVE: CASE EVENT DATE: 20140824
